FAERS Safety Report 16729061 (Version 1)
Quarter: 2019Q3

REPORT INFORMATION
  Report Type: Spontaneous
  Country: US (occurrence: US)
  Receive Date: 20190705
  Receipt Date: 20190705
  Transmission Date: 20191005
  Serious: Yes (Hospitalization)
  Sender: FDA-Public Use
  Company Number: None

PATIENT
  Age: 64 Year
  Sex: Male

DRUGS (3)
  1. REPATHA [Suspect]
     Active Substance: EVOLOCUMAB
     Indication: HYPERCHOLESTEROLAEMIA
     Route: 058
     Dates: start: 20190517
  2. EZETIMBE [Concomitant]
     Active Substance: EZETIMIBE
  3. TESTOSTERONE GEL [Concomitant]
     Active Substance: TESTOSTERONE

REACTIONS (1)
  - Cellulitis [None]

NARRATIVE: CASE EVENT DATE: 20190605
